FAERS Safety Report 17693805 (Version 3)
Quarter: 2021Q2

REPORT INFORMATION
  Report Type: Spontaneous
  Country: AR (occurrence: AR)
  Receive Date: 20200422
  Receipt Date: 20210528
  Transmission Date: 20210716
  Serious: Yes (Hospitalization, Other)
  Sender: FDA-Public Use
  Company Number: NVSC2020AR107292

PATIENT
  Sex: Female

DRUGS (5)
  1. VALSARTAN. [Suspect]
     Active Substance: VALSARTAN
     Indication: HYPERTENSION
     Dosage: 80 MG, QD
     Route: 065
  2. CARVEDILOL. [Concomitant]
     Active Substance: CARVEDILOL
     Indication: CARDIAC DISORDER
     Dosage: UNK
     Route: 065
  3. SIMBRINZA [Suspect]
     Active Substance: BRIMONIDINE TARTRATE\BRINZOLAMIDE
     Indication: GLAUCOMA
     Dosage: 1 DRP, Q12H (IN EACH EYE)
     Route: 065
  4. DAFLON [Concomitant]
     Indication: VARICOSE VEIN
     Dosage: 500 MG
     Route: 065
  5. ASPIRINETAS [Concomitant]
     Active Substance: ASPIRIN
     Indication: ANTICOAGULANT THERAPY
     Dosage: 1 DF, QD
     Route: 065

REACTIONS (19)
  - Blindness [Recovered/Resolved]
  - Conjunctivitis [Recovered/Resolved]
  - Tongue movement disturbance [Not Recovered/Not Resolved]
  - Bone density abnormal [Unknown]
  - Cataract [Not Recovered/Not Resolved]
  - Eye discharge [Not Recovered/Not Resolved]
  - Fall [Recovered/Resolved]
  - Epilepsy [Unknown]
  - Growth of eyelashes [Recovered/Resolved]
  - Eye infection [Recovered/Resolved]
  - Femur fracture [Recovered/Resolved]
  - Scab [Not Recovered/Not Resolved]
  - Urinary incontinence [Unknown]
  - Accident [Not Recovered/Not Resolved]
  - Vision blurred [Recovered/Resolved]
  - Swelling of eyelid [Recovered/Resolved]
  - Ocular hyperaemia [Recovered/Resolved]
  - Dry mouth [Not Recovered/Not Resolved]
  - Irritability [Not Recovered/Not Resolved]

NARRATIVE: CASE EVENT DATE: 2016
